FAERS Safety Report 23449562 (Version 1)
Quarter: 2024Q1

REPORT INFORMATION
  Report Type: Spontaneous
  Country: US (occurrence: US)
  Receive Date: 20240129
  Receipt Date: 20240129
  Transmission Date: 20240410
  Serious: No
  Sender: FDA-Public Use
  Company Number: US-BRISTOL-MYERS SQUIBB COMPANY-2024-009269

PATIENT
  Age: 82 Year
  Sex: Male

DRUGS (1)
  1. LENALIDOMIDE [Suspect]
     Active Substance: LENALIDOMIDE
     Indication: Plasma cell myeloma
     Route: 048

REACTIONS (7)
  - Gastrointestinal disorder [Unknown]
  - Pain [Unknown]
  - Fatigue [Unknown]
  - Nausea [Unknown]
  - Anxiety [Unknown]
  - Constipation [Unknown]
  - Diarrhoea [Unknown]
